FAERS Safety Report 7157154-6 (Version None)
Quarter: 2010Q4

REPORT INFORMATION
  Report Type: 
  Country: None (occurrence: None)
  Receive Date: 20101214
  Receipt Date: 20091216
  Transmission Date: 20110411
  Serious: No
  Sender: FDA-Public Use
  Company Number: US-ASTRAZENECA-2009SE32386

PATIENT
  Age: 63 Year
  Sex: Male

DRUGS (9)
  1. CRESTOR [Suspect]
     Route: 048
     Dates: start: 20091101
  2. CRESTOR [Suspect]
     Route: 048
     Dates: start: 20091214
  3. ATENOLOL [Concomitant]
  4. LISINOPRIL [Concomitant]
  5. MAXIDEX [Concomitant]
  6. ALLOPURINOL [Concomitant]
  7. ASPIRIN [Concomitant]
  8. CO Q 10 [Concomitant]
  9. TRICOR [Concomitant]

REACTIONS (3)
  - ARTHRITIS [None]
  - DRUG DOSE OMISSION [None]
  - HEPATIC ENZYME INCREASED [None]
